FAERS Safety Report 15749745 (Version 1)
Quarter: 2018Q4

REPORT INFORMATION
  Report Type: Spontaneous
  Country: US (occurrence: US)
  Receive Date: 20181220
  Receipt Date: 20181220
  Transmission Date: 20190205
  Serious: Yes (Disabling)
  Sender: FDA-Public Use
  Company Number: None

PATIENT
  Age: 45 Year
  Sex: Female
  Weight: 66.6 kg

DRUGS (1)
  1. LYRICA [Suspect]
     Active Substance: PREGABALIN
     Indication: FIBROMYALGIA
     Dosage: ?          QUANTITY:2 CAPSULE(S);?
     Route: 048

REACTIONS (8)
  - Partial seizures [None]
  - Confusional state [None]
  - Drug ineffective [None]
  - Memory impairment [None]
  - Withdrawal syndrome [None]
  - Gait inability [None]
  - Balance disorder [None]
  - Walking aid user [None]

NARRATIVE: CASE EVENT DATE: 20181021
